FAERS Safety Report 6510497-9 (Version None)
Quarter: 2009Q4

REPORT INFORMATION
  Report Type: 
  Country: None (occurrence: None)
  Receive Date: 20091222
  Receipt Date: 20091210
  Transmission Date: 20100525
  Serious: Yes (Death)
  Sender: FDA-Public Use
  Company Number: DE-AMGEN-US380140

PATIENT
  Age: 69 Year
  Sex: Female

DRUGS (1)
  1. ENBREL [Suspect]
     Indication: PSORIASIS
     Dosage: VARIOUS (1X25 MG PER WEEK, 2X25MG PER WEEK, 1X50MG PER WEEK)
     Route: 058
     Dates: start: 20080310, end: 20090424

REACTIONS (1)
  - DEATH [None]
